FAERS Safety Report 8962283 (Version 3)
Quarter: 2013Q1

REPORT INFORMATION
  Report Type: Spontaneous
  Country: US (occurrence: US)
  Receive Date: 20121212
  Receipt Date: 20130110
  Transmission Date: 20140127
  Serious: Yes (Hospitalization, Other)
  Sender: FDA-Public Use
  Company Number: US-GILEAD-2012-0065984

PATIENT
  Sex: Male

DRUGS (6)
  1. LETAIRIS [Suspect]
     Indication: PULMONARY HYPERTENSION
     Dosage: 5 MG, QD
     Route: 048
     Dates: start: 20121117
  2. LETAIRIS [Suspect]
     Indication: RENAL FAILURE
  3. LETAIRIS [Suspect]
     Indication: SLEEP APNOEA SYNDROME
  4. LETAIRIS [Suspect]
     Indication: CARDIOMYOPATHY
  5. VENTAVIS [Concomitant]
  6. REVATIO [Concomitant]

REACTIONS (5)
  - Dehydration [Recovered/Resolved]
  - Localised intraabdominal fluid collection [Unknown]
  - Haemodialysis [Unknown]
  - Asthenia [Unknown]
  - Fall [Unknown]
